FAERS Safety Report 8917253 (Version 2)
Quarter: 2012Q4

REPORT INFORMATION
  Report Type: 
  Country: JP (occurrence: JP)
  Receive Date: 20121120
  Receipt Date: 20121127
  Transmission Date: 20130627
  Serious: Yes (Other)
  Sender: FDA-Public Use
  Company Number: JP-PFIZER INC-2012290019

PATIENT
  Age: 7 None
  Sex: Female

DRUGS (4)
  1. LIPITOR [Suspect]
     Dosage: 10 mg, 1x/day
     Route: 048
  2. AMLODIPINE BESILATE [Concomitant]
     Dosage: UNK
     Route: 048
  3. TAKEPRON [Concomitant]
     Dosage: UNK
  4. EDIROL [Concomitant]
     Dosage: UNK

REACTIONS (1)
  - Foot fracture [Unknown]
